FAERS Safety Report 18488954 (Version 1)
Quarter: 2020Q4

REPORT INFORMATION
  Report Type: Spontaneous
  Country: US (occurrence: US)
  Receive Date: 20201111
  Receipt Date: 20201111
  Transmission Date: 20210114
  Serious: No
  Sender: FDA-Public Use
  Company Number: US-TEVA-2020-US-1844756

PATIENT

DRUGS (1)
  1. BUPROPION ACTAVIS [Suspect]
     Active Substance: BUPROPION
     Route: 065

REACTIONS (4)
  - Palpitations [Unknown]
  - Product substitution issue [Unknown]
  - Anxiety [Unknown]
  - Paranoia [Unknown]
